FAERS Safety Report 23422943 (Version 1)
Quarter: 2024Q1

REPORT INFORMATION
  Report Type: Spontaneous
  Country: US (occurrence: US)
  Receive Date: 20240119
  Receipt Date: 20240119
  Transmission Date: 20240410
  Serious: No
  Sender: FDA-Public Use
  Company Number: US-SA-SAC20240116001249

PATIENT
  Sex: Male
  Weight: 68.94 kg

DRUGS (3)
  1. DUPIXENT [Suspect]
     Active Substance: DUPILUMAB
     Indication: Dermatitis atopic
     Dosage: 300 MG: QOW
     Route: 058
  2. DUPIXENT [Suspect]
     Active Substance: DUPILUMAB
     Indication: Nasal polyps
  3. NUCALA [Concomitant]
     Active Substance: MEPOLIZUMAB

REACTIONS (12)
  - Hypoacusis [Unknown]
  - Sleep disorder due to a general medical condition [Unknown]
  - Paranasal sinus discomfort [Unknown]
  - Nasal obstruction [Unknown]
  - Secretion discharge [Unknown]
  - Head discomfort [Unknown]
  - Sinus disorder [Unknown]
  - Condition aggravated [Unknown]
  - Upper respiratory tract infection [Unknown]
  - Pruritus [Unknown]
  - Rash [Not Recovered/Not Resolved]
  - Drug ineffective [Unknown]
